FAERS Safety Report 25017291 (Version 1)
Quarter: 2025Q1

REPORT INFORMATION
  Report Type: Spontaneous
  Country: FR (occurrence: FR)
  Receive Date: 20250227
  Receipt Date: 20250227
  Transmission Date: 20250408
  Serious: Yes (Other)
  Sender: AMGEN
  Company Number: None

PATIENT
  Age: 79 Year
  Sex: Female
  Weight: 70 kg

DRUGS (1)
  1. PROLIA [Suspect]
     Active Substance: DENOSUMAB
     Indication: Osteoporotic fracture
     Dosage: 60 MILLIGRAM, Q6MO
     Route: 058
     Dates: start: 20240104, end: 20250110

REACTIONS (2)
  - Pyelonephritis [Recovered/Resolved]
  - Phlebitis [Recovered/Resolved]

NARRATIVE: CASE EVENT DATE: 20240301
